FAERS Safety Report 18294049 (Version 2)
Quarter: 2020Q4

REPORT INFORMATION
  Report Type: Spontaneous
  Country: JP (occurrence: JP)
  Receive Date: 20200922
  Receipt Date: 20201020
  Transmission Date: 20210113
  Serious: Yes (Hospitalization, Other)
  Sender: FDA-Public Use
  Company Number: JP-009507513-2009JPN007711

PATIENT
  Age: 82 Year
  Sex: Male
  Weight: 73 kg

DRUGS (9)
  1. PITAVASTATIN CALCIUM [Suspect]
     Active Substance: PITAVASTATIN CALCIUM
     Dosage: 1 MG, EVERYDAY (STOP DATE: 2020/06/07)
     Route: 048
     Dates: end: 20200607
  2. TORSEMIDE. [Suspect]
     Active Substance: TORSEMIDE
     Indication: CARDIAC FAILURE CHRONIC
     Dosage: 8 MG, EVERYDAY (STOP DATE: 2020/06/07)
     Route: 048
     Dates: end: 20200607
  3. SODIUM CITRATE. [Concomitant]
     Active Substance: SODIUM CITRATE
     Dosage: 50 MG, Q12H (STOP DATE: 2020/06/07)
     Route: 048
     Dates: end: 20200607
  4. WARFARIN [Concomitant]
     Active Substance: WARFARIN
     Dosage: 2 MG, EVERYDAY
     Route: 048
     Dates: start: 20200629
  5. FORXIGA [Suspect]
     Active Substance: DAPAGLIFLOZIN
     Indication: CARDIAC FAILURE CHRONIC
     Dosage: 5 MG, EVERYDAY
     Route: 048
     Dates: start: 20200528, end: 20200606
  6. BISOPROLOL FUMARATE. [Concomitant]
     Active Substance: BISOPROLOL FUMARATE
     Indication: CARDIAC FAILURE CHRONIC
     Dosage: 2.5 MG, EVERYDAY
     Route: 048
  7. GLACTIV [Suspect]
     Active Substance: SITAGLIPTIN
     Indication: TYPE 2 DIABETES MELLITUS
     Dosage: 50 MG, EVERYDAY (STOP DATE: 2020/06/07)
     Route: 048
     Dates: end: 20200607
  8. WARFARIN [Concomitant]
     Active Substance: WARFARIN
     Indication: CARDIAC FAILURE CHRONIC
     Dosage: 3.75 MG, EVERYDAY (STOP DATE: 2020/06/05)
     Route: 048
     Dates: end: 20200605
  9. SILODOSIN. [Concomitant]
     Active Substance: SILODOSIN
     Dosage: 4 MG, Q12H
     Route: 048

REACTIONS (2)
  - Platelet count decreased [Recovered/Resolved]
  - Cardiac failure chronic [Recovering/Resolving]

NARRATIVE: CASE EVENT DATE: 20200518
